FAERS Safety Report 8702000 (Version 2)
Quarter: 2013Q1

REPORT INFORMATION
  Report Type: Report from Study
  Country: JP (occurrence: JP)
  Receive Date: 20120803
  Receipt Date: 20130218
  Transmission Date: 20140127
  Serious: Yes (Other)
  Sender: FDA-Public Use
  Company Number: JP-009507513-2012SP013381

PATIENT
  Age: 61 Year
  Sex: Female
  Weight: 51 kg

DRUGS (29)
  1. PEGINTRON [Suspect]
     Indication: CHRONIC HEPATITIS C
     Dosage: 1.5 ?G/KG, QW
     Route: 058
     Dates: start: 20120107, end: 20120206
  2. PEGINTRON [Suspect]
     Dosage: 1.2 ?G/KG, QW
     Route: 058
     Dates: start: 20120213, end: 20120312
  3. PEGINTRON [Suspect]
     Dosage: 1.0 ?G/KG, QW
     Route: 058
     Dates: start: 20120319, end: 20120319
  4. PEGINTRON [Suspect]
     Dosage: 0.8 ?G/KG, QW
     Route: 058
     Dates: start: 20120326, end: 20120409
  5. PEGINTRON [Suspect]
     Dosage: 1.2 MICROGRAM PER KILOGRAM, UNK
     Route: 058
     Dates: start: 20120416, end: 20120416
  6. PEGINTRON [Suspect]
     Dosage: 1.5 MICROGRAM PER KILOGRAM, UNK
     Route: 058
     Dates: start: 20120424, end: 20120618
  7. REBETOL [Suspect]
     Indication: CHRONIC HEPATITIS C
     Dosage: 600 MG, QD
     Route: 048
     Dates: start: 20120107, end: 20120129
  8. REBETOL [Suspect]
     Dosage: 200 MG, QD
     Route: 048
     Dates: start: 20120130, end: 20120212
  9. REBETOL [Suspect]
     Dosage: 400 MG, QD
     Route: 048
     Dates: start: 20120213
  10. REBETOL [Suspect]
     Dosage: 600 MG, QD
     Route: 048
     Dates: end: 20120311
  11. REBETOL [Suspect]
     Dosage: 200 MG, QD
     Route: 048
     Dates: start: 20120312, end: 20120318
  12. REBETOL [Suspect]
     Dosage: 200 MG, QD
     Route: 048
     Dates: start: 20120430, end: 20120520
  13. REBETOL [Suspect]
     Dosage: 400 MG, QD
     Route: 048
     Dates: start: 20120521, end: 20120527
  14. REBETOL [Suspect]
     Dosage: 600 MG, QD
     Route: 048
     Dates: start: 20120528, end: 20120603
  15. REBETOL [Suspect]
     Dosage: 400 MG, QD
     Route: 048
     Dates: start: 20120604, end: 20120610
  16. REBETOL [Suspect]
     Dosage: 600 MG, ONCE
     Route: 048
     Dates: start: 20120611, end: 20120618
  17. TELAVIC [Suspect]
     Indication: CHRONIC HEPATITIS C
     Dosage: 2250 MG, QD
     Route: 048
     Dates: start: 20120107, end: 20120129
  18. TELAVIC [Suspect]
     Dosage: 1500 MG,  QD
     Route: 048
     Dates: start: 20120130, end: 20120325
  19. SLOW-K [Concomitant]
     Indication: HYPOKALAEMIA
     Dosage: 2400 MG. QD
     Route: 048
  20. EPADEL [Concomitant]
     Indication: HYPERLIPIDAEMIA
     Dosage: 1800 MG, QD, FORMULATION: POR
     Route: 048
  21. CLARITIN [Concomitant]
     Indication: PROPHYLAXIS
     Dosage: 10 MG, QD
     Route: 048
  22. CLARITIN REDITABS [Concomitant]
     Indication: PROPHYLAXIS
     Dosage: 10 MG, FORMULATION: POR
     Route: 048
  23. DOGMATYL [Concomitant]
     Indication: GASTRITIS
     Dosage: 100 MG, QD, ): FORMULATION: POR
     Route: 048
  24. DOGMATYL [Concomitant]
     Indication: GASTRIC ULCER
  25. PREDONINE [Concomitant]
     Indication: RASH
     Dosage: UPDATE (07MAY2012)
     Route: 065
     Dates: start: 20120110, end: 20120116
  26. PREDONINE [Concomitant]
     Indication: RASH
     Dosage: UPDATE (07MAY2012)
     Route: 065
     Dates: start: 20120117
  27. LIVALO [Concomitant]
     Indication: HYPERLIPIDAEMIA
     Dosage: 2 MG, QD
     Route: 048
     Dates: end: 20120113
  28. FEROTYM [Concomitant]
     Indication: IRON DEFICIENCY ANAEMIA
     Dosage: 100 MG, QD. FORMULATION: POR
     Route: 048
  29. EPADEL S [Concomitant]
     Indication: HYPERLIPIDAEMIA
     Dosage: 1800 MG, QD
     Route: 048

REACTIONS (7)
  - Renal disorder [Not Recovered/Not Resolved]
  - Blood creatinine increased [Not Recovered/Not Resolved]
  - Anaemia [Not Recovered/Not Resolved]
  - Hyperuricaemia [Recovering/Resolving]
  - Rash [None]
  - Pruritus [None]
  - Platelet count decreased [None]
